FAERS Safety Report 23909900 (Version 2)
Quarter: 2024Q2

REPORT INFORMATION
  Report Type: Spontaneous
  Country: JP (occurrence: JP)
  Receive Date: 20240528
  Receipt Date: 20240529
  Transmission Date: 20240716
  Serious: Yes (Other)
  Sender: FDA-Public Use
  Company Number: JP-BAYER-2024A077413

PATIENT
  Sex: Male

DRUGS (2)
  1. XOFIGO [Suspect]
     Active Substance: RADIUM RA-223 DICHLORIDE
     Indication: Hormone-refractory prostate cancer
  2. DENOSUMAB [Concomitant]
     Active Substance: DENOSUMAB

REACTIONS (1)
  - Neoplasm progression [Not Recovered/Not Resolved]
